FAERS Safety Report 22031587 (Version 1)
Quarter: 2023Q1

REPORT INFORMATION
  Report Type: Spontaneous
  Country: FR (occurrence: FR)
  Receive Date: 20230224
  Receipt Date: 20230224
  Transmission Date: 20230417
  Serious: Yes (Hospitalization)
  Sender: FDA-Public Use
  Company Number: FR-VALIDUS PHARMACEUTICALS LLC-FR-VDP-2023-015963

PATIENT

DRUGS (2)
  1. ROCALTROL [Suspect]
     Active Substance: CALCITRIOL
     Indication: Hypocalcaemia
     Dosage: 0.25 MICROGRAM
     Route: 048
     Dates: start: 202301, end: 202302
  2. ALFACALCIDOL [Suspect]
     Active Substance: ALFACALCIDOL
     Indication: Hypocalcaemia
     Dosage: UNK
     Route: 048
     Dates: start: 202301, end: 202302

REACTIONS (5)
  - Asthenia [Recovered/Resolved]
  - Muscular weakness [Recovered/Resolved]
  - Product prescribing error [Recovered/Resolved]
  - Confusional state [Recovered/Resolved]
  - Hypercalcaemia [Recovered/Resolved]

NARRATIVE: CASE EVENT DATE: 20230101
